FAERS Safety Report 12650344 (Version 1)
Quarter: 2016Q3

REPORT INFORMATION
  Report Type: Other
  Country: GR (occurrence: GR)
  Receive Date: 20160814
  Receipt Date: 20160814
  Transmission Date: 20161109
  Serious: No
  Sender: FDA-Public Use
  Company Number: GR-WARNER CHILCOTT, LLC-1056300

PATIENT
  Age: 37 Year
  Sex: Female

DRUGS (2)
  1. ASACOL [Suspect]
     Active Substance: MESALAMINE
     Indication: COLITIS ULCERATIVE
     Route: 065
  2. ASACOL [Suspect]
     Active Substance: MESALAMINE

REACTIONS (8)
  - Organising pneumonia [Recovered/Resolved]
  - Emphysema [Recovered/Resolved]
  - Obliterative bronchiolitis [Recovered/Resolved]
  - Lung infiltration [Recovered/Resolved]
  - Colitis ulcerative [None]
  - Pulmonary mass [Recovered/Resolved]
  - Bronchial wall thickening [Recovered/Resolved]
  - Condition aggravated [None]
